FAERS Safety Report 8233687 (Version 6)
Quarter: 2012Q4

REPORT INFORMATION
  Report Type: 
  Country: ES (occurrence: ES)
  Receive Date: 20111107
  Receipt Date: 20121204
  Transmission Date: 20130627
  Serious: Yes (Disabling, Other)
  Sender: FDA-Public Use
  Company Number: ES-MERCK-1110ESP00061

PATIENT
  Age: 29 Year
  Sex: Male
  Weight: 81 kg

DRUGS (2)
  1. PROPECIA [Suspect]
     Dosage: 1 mg, qd
     Route: 048
     Dates: start: 2000, end: 2006
  2. PROSCAR [Suspect]
     Dosage: a quarter of the tablet/daily
     Route: 048
     Dates: start: 2006, end: 2006

REACTIONS (11)
  - Tendon rupture [Not Recovered/Not Resolved]
  - Tendon disorder [Not Recovered/Not Resolved]
  - Tendon pain [Not Recovered/Not Resolved]
  - Ligament sprain [Recovered/Resolved]
  - Testicular pain [Recovered/Resolved]
  - Abdominal pain [Unknown]
  - Groin pain [Unknown]
  - Ejaculation disorder [Unknown]
  - Wrong technique in drug usage process [Unknown]
  - Intentional drug misuse [Unknown]
  - Malaise [Not Recovered/Not Resolved]
